FAERS Safety Report 13954310 (Version 1)
Quarter: 2017Q3

REPORT INFORMATION
  Report Type: Spontaneous
  Country: BE (occurrence: BE)
  Receive Date: 20170911
  Receipt Date: 20170911
  Transmission Date: 20171128
  Serious: Yes (Other)
  Sender: FDA-Public Use
  Company Number: BE-BAYER-2017-168184

PATIENT
  Sex: Female
  Weight: 56 kg

DRUGS (1)
  1. MIRENA [Suspect]
     Active Substance: LEVONORGESTREL
     Indication: CONTRACEPTION
     Dosage: 20 MCG/24HR, CONT
     Route: 015
     Dates: start: 2007, end: 20170612

REACTIONS (3)
  - Muscle spasms [Not Recovered/Not Resolved]
  - Seasonal affective disorder [Not Recovered/Not Resolved]
  - Migraine with aura [Not Recovered/Not Resolved]

NARRATIVE: CASE EVENT DATE: 2007
